FAERS Safety Report 4493083-4 (Version None)
Quarter: 2004Q4

REPORT INFORMATION
  Report Type: 
  Country: None (occurrence: None)
  Receive Date: 20041101
  Receipt Date: 20041020
  Transmission Date: 20050328
  Serious: Yes (Hospitalization)
  Sender: FDA-Public Use
  Company Number: 04H-087-0278073-00

PATIENT
  Age: 73 Year
  Sex: Male

DRUGS (6)
  1. PENTAZOCINE LACTATE [Suspect]
     Indication: HEPATIC CIRRHOSIS
     Dosage: INTRAVENOUS
     Route: 042
     Dates: start: 20040904, end: 20040904
  2. PENTAZOCINE LACTATE [Suspect]
     Indication: RADIOFREQUENCY ABLATION
     Dosage: INTRAVENOUS
     Route: 042
     Dates: start: 20040904, end: 20040904
  3. URSODEXYCHOLIC ACID [Suspect]
     Dosage: 300 MG, THREE TIMES A DAY (TID), ORAL
     Route: 048
     Dates: start: 20040720, end: 20040910
  4. LEVOVIST [Concomitant]
  5. GLYCYRON [Concomitant]
  6. GLYCYRRHIZIC ACID [Concomitant]

REACTIONS (1)
  - RASH ERYTHEMATOUS [None]
